FAERS Safety Report 4475259-5 (Version None)
Quarter: 2004Q4

REPORT INFORMATION
  Report Type: 
  Country: None (occurrence: None)
  Receive Date: 20041012
  Receipt Date: 20040929
  Transmission Date: 20050328
  Serious: Yes (Other)
  Sender: FDA-Public Use
  Company Number: 2004236163US

PATIENT
  Age: 24 Year
  Sex: Female

DRUGS (2)
  1. DEPO-PROVERA [Suspect]
     Dosage: 150 MG, FIRST INJECTION, INTRAMUSCULAR
     Route: 030
     Dates: start: 20040301, end: 20040301
  2. ZOLOFT [Concomitant]

REACTIONS (3)
  - DEPRESSION [None]
  - IRRITABILITY [None]
  - SUICIDAL IDEATION [None]
